FAERS Safety Report 9768161 (Version 1)
Quarter: 2013Q4

REPORT INFORMATION
  Report Type: Spontaneous
  Country: US (occurrence: US)
  Receive Date: 20131217
  Receipt Date: 20131217
  Transmission Date: 20140711
  Serious: Yes (Other)
  Sender: FDA-Public Use
  Company Number: US-PFIZER INC-2013359172

PATIENT
  Age: 75 Year
  Sex: Male
  Weight: 64.4 kg

DRUGS (6)
  1. LYRICA [Suspect]
     Indication: NEURALGIA
     Dosage: 50 MG, 2X/DAY
     Route: 048
     Dates: start: 201311
  2. LIPITOR [Concomitant]
     Dosage: 40 MG, UNK
     Route: 048
  3. PROTONIX [Concomitant]
     Dosage: 40 MG, UNK
  4. ENALAPRIL [Concomitant]
     Dosage: 10 MG, UNK
  5. CARVEDILOL [Concomitant]
     Dosage: 6.25 MG, UNK
  6. WARFARIN [Concomitant]
     Indication: ANTICOAGULANT THERAPY
     Dosage: 5 DAYS 4.5MG 2 DAYS 3MG SINCE 29 WEEKS

REACTIONS (4)
  - Cataract [Unknown]
  - Anticoagulation drug level below therapeutic [Unknown]
  - Weight increased [Unknown]
  - Drug effect incomplete [Unknown]
